FAERS Safety Report 13459494 (Version 2)
Quarter: 2017Q3

REPORT INFORMATION
  Report Type: Report from Study
  Country: US (occurrence: US)
  Receive Date: 20170419
  Receipt Date: 20170810
  Transmission Date: 20171127
  Serious: Yes (Hospitalization)
  Sender: FDA-Public Use
  Company Number: US-VIFOR (INTERNATIONAL) INC.-VIT-2017-04034

PATIENT
  Age: 67 Year
  Sex: Male

DRUGS (2)
  1. VELTASSA [Suspect]
     Active Substance: PATIROMER
     Indication: PRODUCT USED FOR UNKNOWN INDICATION
     Dates: start: 20170202, end: 2017
  2. VELTASSA [Suspect]
     Active Substance: PATIROMER

REACTIONS (5)
  - Pneumonia [Unknown]
  - Inappropriate schedule of drug administration [Unknown]
  - Eye disorder [Unknown]
  - Hypoacusis [Unknown]
  - Hypersensitivity [Unknown]

NARRATIVE: CASE EVENT DATE: 2017
